FAERS Safety Report 8960998 (Version 2)
Quarter: 2012Q4

REPORT INFORMATION
  Report Type: 
  Country: AT (occurrence: AT)
  Receive Date: 20121213
  Receipt Date: 20121228
  Transmission Date: 20130627
  Serious: Yes (Death, Other)
  Sender: FDA-Public Use
  Company Number: AT-CELGENEUS-009-50794-12120541

PATIENT
  Age: 66 Year
  Sex: Male

DRUGS (3)
  1. VIDAZA [Suspect]
     Indication: CHRONIC MYELOMONOCYTIC LEUKEMIA
     Route: 065
     Dates: start: 200903, end: 201010
  2. VIDAZA [Suspect]
     Indication: RAEB
  3. RED BLOOD CELLS [Concomitant]
     Indication: DRUG USE FOR UNKNOWN INDICATION
     Route: 065

REACTIONS (3)
  - Sepsis [Fatal]
  - Acute myeloid leukaemia [Not Recovered/Not Resolved]
  - Therapeutic response decreased [Unknown]
